FAERS Safety Report 10230209 (Version 4)
Quarter: 2014Q3

REPORT INFORMATION
  Report Type: Spontaneous
  Country: US (occurrence: US)
  Receive Date: 20140611
  Receipt Date: 20140818
  Transmission Date: 20150326
  Serious: Yes (Hospitalization, Other)
  Sender: FDA-Public Use
  Company Number: US-BAXTER-2014BAX029543

PATIENT
  Sex: Female

DRUGS (1)
  1. DIANEAL LOW CALCIUM PERITONEAL DIALYSIS SOLUTION WITH DEXTROSE [Suspect]
     Active Substance: CALCIUM CHLORIDE\DEXTROSE\MAGNESIUM CHLORIDE\SODIUM CHLORIDE\SODIUM LACTATE
     Indication: PERITONEAL DIALYSIS
     Route: 033

REACTIONS (10)
  - Blood glucose decreased [Unknown]
  - Weight decreased [Unknown]
  - Diarrhoea [Unknown]
  - Myocardial infarction [Recovering/Resolving]
  - Procedural complication [Recovering/Resolving]
  - Medical device complication [Recovering/Resolving]
  - Rib fracture [Recovering/Resolving]
  - Viral infection [Unknown]
  - Dehydration [Unknown]
  - Cardiac valve disease [Recovering/Resolving]
